FAERS Safety Report 8117617-3 (Version None)
Quarter: 2012Q1

REPORT INFORMATION
  Report Type: 
  Country: None (occurrence: None)
  Receive Date: 20120207
  Receipt Date: 20120130
  Transmission Date: 20120608
  Serious: No
  Sender: FDA-Public Use
  Company Number: US-BIOGENIDEC-2012BI003714

PATIENT
  Sex: Male

DRUGS (2)
  1. AVONEX [Suspect]
     Route: 030
  2. AVONEX [Suspect]
     Indication: MULTIPLE SCLEROSIS
     Route: 030
     Dates: start: 19981202

REACTIONS (9)
  - FALL [None]
  - FATIGUE [None]
  - INSOMNIA [None]
  - ANXIETY [None]
  - COORDINATION ABNORMAL [None]
  - MUSCLE SPASTICITY [None]
  - GAIT DISTURBANCE [None]
  - DRUG INEFFECTIVE [None]
  - MULTIPLE SCLEROSIS RELAPSE [None]
